FAERS Safety Report 10011316 (Version 1)
Quarter: 2014Q1

REPORT INFORMATION
  Report Type: Spontaneous
  Country: US (occurrence: US)
  Receive Date: 20140314
  Receipt Date: 20140314
  Transmission Date: 20141002
  Serious: No
  Sender: FDA-Public Use
  Company Number: US-DRREDDYS-USA/USA/13/0035511

PATIENT
  Age: 67 Year
  Sex: Female
  Weight: 68.1 kg

DRUGS (2)
  1. CETIRIZINE [Suspect]
     Indication: HYPERSENSITIVITY
     Route: 065
     Dates: start: 20131103
  2. POVIDONE [Suspect]
     Indication: PRODUCT USED FOR UNKNOWN INDICATION
     Route: 065

REACTIONS (3)
  - Nausea [Unknown]
  - Cold sweat [Unknown]
  - Gastrointestinal disorder [Unknown]
